FAERS Safety Report 5357191-8 (Version None)
Quarter: 2007Q2

REPORT INFORMATION
  Report Type: 
  Country: None (occurrence: None)
  Receive Date: 20070614
  Receipt Date: 20070605
  Transmission Date: 20071010
  Serious: Yes (Other)
  Sender: FDA-Public Use
  Company Number: US-JNJFOC-20070602681

PATIENT
  Sex: Female
  Weight: 72.58 kg

DRUGS (4)
  1. DURAGESIC-100 [Suspect]
     Indication: PAIN
     Route: 062
  2. XANAX [Concomitant]
     Indication: ANXIETY
     Dosage: AT BEDTIME
     Route: 048
  3. AMITRIPTYLINE HCL [Concomitant]
     Dosage: AT BEDTIME
     Route: 048
  4. PHENERGAN HCL [Concomitant]
     Indication: NAUSEA
     Route: 048

REACTIONS (3)
  - CROHN'S DISEASE [None]
  - DEHYDRATION [None]
  - VOMITING [None]
